FAERS Safety Report 23348249 (Version 1)
Quarter: 2023Q4

REPORT INFORMATION
  Report Type: Report from Study
  Country: CN (occurrence: CN)
  Receive Date: 20231228
  Receipt Date: 20231228
  Transmission Date: 20240109
  Serious: Yes (Hospitalization)
  Sender: FDA-Public Use
  Company Number: CN-Eisai-EC-2023-155899

PATIENT
  Age: 52 Year
  Sex: Male
  Weight: 65.5 kg

DRUGS (8)
  1. LENVATINIB [Suspect]
     Active Substance: LENVATINIB
     Indication: Hepatocellular carcinoma
     Route: 048
     Dates: start: 20220318, end: 20220703
  2. LENVATINIB [Suspect]
     Active Substance: LENVATINIB
     Route: 048
     Dates: start: 20220704, end: 20221019
  3. TORIPALIMAB [Suspect]
     Active Substance: TORIPALIMAB
     Indication: Hepatocellular carcinoma
     Dosage: 240MG/PLACEBO
     Route: 041
     Dates: start: 20220318, end: 20221019
  4. TORIPALIMAB [Suspect]
     Active Substance: TORIPALIMAB
     Dosage: 240MG/PLACEBO
     Route: 041
     Dates: end: 20230113
  5. TORIPALIMAB [Suspect]
     Active Substance: TORIPALIMAB
     Dosage: 240MG/PLACEBO
     Route: 041
     Dates: end: 20230222
  6. TORIPALIMAB [Suspect]
     Active Substance: TORIPALIMAB
     Dosage: 240MG/PLACEBO
     Route: 041
  7. TENOFOVIR DISOPROXIL FUMARATE [Concomitant]
     Active Substance: TENOFOVIR DISOPROXIL FUMARATE
     Indication: Chronic hepatitis B
     Route: 048
     Dates: start: 20220311
  8. Entecavir Dispersible [Concomitant]
     Indication: Chronic hepatitis B
     Route: 048
     Dates: start: 201904

REACTIONS (1)
  - Hypothyroidism [Recovering/Resolving]

NARRATIVE: CASE EVENT DATE: 20221024
